FAERS Safety Report 12600611 (Version 1)
Quarter: 2016Q3

REPORT INFORMATION
  Report Type: Spontaneous
  Country: US (occurrence: US)
  Receive Date: 20160727
  Receipt Date: 20160727
  Transmission Date: 20161109
  Serious: Yes (Other)
  Sender: FDA-Public Use
  Company Number: US-ALLERGAN-1663859US

PATIENT
  Age: 72 Year
  Sex: Male

DRUGS (3)
  1. LUMIGAN [Suspect]
     Active Substance: BIMATOPROST
     Indication: INTRAOCULAR PRESSURE INCREASED
     Dosage: UNK
     Route: 047
     Dates: start: 201501
  2. COMBIGAN [Suspect]
     Active Substance: BRIMONIDINE TARTRATE\TIMOLOL MALEATE
     Indication: INTRAOCULAR PRESSURE INCREASED
     Dosage: UNK
     Route: 047
     Dates: start: 2014
  3. LUMIGAN [Suspect]
     Active Substance: BIMATOPROST
     Dosage: UNK
     Dates: start: 201501

REACTIONS (3)
  - Presyncope [Recovered/Resolved]
  - Eye operation [Recovered/Resolved]
  - Retinal vein occlusion [Recovered/Resolved]

NARRATIVE: CASE EVENT DATE: 201501
